FAERS Safety Report 8785003 (Version 1)
Quarter: 2012Q4

REPORT INFORMATION
  Report Type: 
  Country: US (occurrence: US)
  Receive Date: 20120914
  Receipt Date: 20120914
  Transmission Date: 20130627
  Serious: Yes (Other)
  Sender: FDA-Public Use
  Company Number: US-JNJFOC-20120902345

PATIENT

DRUGS (1)
  1. INFLIXIMAB, RECOMBINANT [Suspect]
     Indication: OCULAR SARCOIDOSIS
     Route: 042

REACTIONS (2)
  - Toxicity to various agents [Unknown]
  - Drug hypersensitivity [Unknown]
